FAERS Safety Report 10496278 (Version 2)
Quarter: 2017Q3

REPORT INFORMATION
  Report Type: Spontaneous
  Country: US (occurrence: US)
  Receive Date: 20141003
  Receipt Date: 20170830
  Transmission Date: 20171127
  Serious: Yes (Other)
  Sender: FDA-Public Use
  Company Number: US-MERCK-1410USA001239

PATIENT

DRUGS (4)
  1. CAPECITABINE. [Suspect]
     Active Substance: CAPECITABINE
     Indication: NEUROENDOCRINE CARCINOMA METASTATIC
     Dosage: 600 MG, BID
  2. YTTRIUM-90 [Suspect]
     Active Substance: YTTRIUM Y-90
     Indication: NEUROENDOCRINE CARCINOMA METASTATIC
     Dosage: UNK
  3. TEMODAR [Suspect]
     Active Substance: TEMOZOLOMIDE
     Dosage: UNK
     Route: 048
  4. TEMODAR [Suspect]
     Active Substance: TEMOZOLOMIDE
     Indication: NEUROENDOCRINE CARCINOMA METASTATIC
     Dosage: 150-200 MG/M2 IN 2 DOSES ON DAYS 10-14 WITH 14 DAYS BETWEEN CYCLES
     Route: 048

REACTIONS (1)
  - Immune thrombocytopenic purpura [Unknown]
